FAERS Safety Report 8490596-5 (Version None)
Quarter: 2012Q3

REPORT INFORMATION
  Report Type: 
  Country: None (occurrence: None)
  Receive Date: 20120705
  Receipt Date: 20120702
  Transmission Date: 20120928
  Serious: Yes (Death)
  Sender: FDA-Public Use
  Company Number: GB-ABBOTT-12P-167-0939556-00

PATIENT
  Age: 40 Year
  Sex: Male
  Weight: 104 kg

DRUGS (11)
  1. VENTOLIN [Concomitant]
     Indication: PRODUCT USED FOR UNKNOWN INDICATION
  2. DIAZEPAM [Concomitant]
     Indication: ANXIETY
     Route: 048
     Dates: start: 20111019
  3. METHADONE HCL [Interacting]
     Indication: PAIN
     Dosage: CUMULATIVE DOSE TO 1ST REACTION: 270 MG
     Route: 048
     Dates: start: 20111025, end: 20111030
  4. MULTI-VITAMIN [Concomitant]
     Indication: PRODUCT USED FOR UNKNOWN INDICATION
     Dosage: VITAMIN BPC
  5. CLARITHROMYCIN [Interacting]
     Indication: UPPER RESPIRATORY TRACT INFECTION
  6. ORAMORPH SR [Concomitant]
     Indication: PAIN
     Dosage: CUMULATIVE DOSE TO 1ST REACTION: 11300 MG
     Route: 048
     Dates: start: 20110707, end: 20111025
  7. HUMIRA [Concomitant]
     Indication: CROHN'S DISEASE
     Route: 058
     Dates: start: 20111005, end: 20111019
  8. LANSOPRAZOLE [Concomitant]
     Indication: GASTRITIS
     Dosage: CUMULATIVE DOSE TO 1ST REACTION: 270 MG
     Route: 048
     Dates: start: 20111019
  9. ADCAL D3 [Concomitant]
     Indication: CROHN'S DISEASE
     Dosage: CUMULATIVE DOSE TO 1ST REACTION: 162 DF
     Route: 048
     Dates: start: 20110808
  10. CLARITHROMYCIN [Suspect]
     Indication: LOWER RESPIRATORY TRACT INFECTION
     Dosage: CUMULATIVE DOSE TO 1ST REACTION: 1000 MG
     Route: 048
     Dates: start: 20111028, end: 20111030
  11. ORAMORPH SR [Concomitant]
     Indication: CROHN'S DISEASE

REACTIONS (2)
  - DEATH [None]
  - INHIBITORY DRUG INTERACTION [None]
